FAERS Safety Report 8594450-X (Version None)
Quarter: 2012Q3

REPORT INFORMATION
  Report Type: 
  Country: None (occurrence: None)
  Receive Date: 20120815
  Receipt Date: 20120809
  Transmission Date: 20120928
  Serious: No
  Sender: FDA-Public Use
  Company Number: US-BIOGENIDEC-2012BI030673

PATIENT
  Age: 36 Year
  Sex: Male

DRUGS (3)
  1. AVONEX [Suspect]
     Indication: MULTIPLE SCLEROSIS
     Route: 030
     Dates: start: 20120730, end: 20120730
  2. AVONEX [Suspect]
     Route: 030
     Dates: start: 20120806, end: 20120806
  3. ASPIRIN [Concomitant]
     Indication: PREMEDICATION
     Dates: start: 20120730

REACTIONS (3)
  - COGNITIVE DISORDER [None]
  - PAIN [None]
  - CHILLS [None]
